FAERS Safety Report 5062356-9 (Version None)
Quarter: 2006Q3

REPORT INFORMATION
  Report Type: 
  Country: None (occurrence: None)
  Receive Date: 20060726
  Receipt Date: 20060724
  Transmission Date: 20061208
  Serious: Yes (Other)
  Sender: FDA-Public Use
  Company Number: US-GLAXOSMITHKLINE-A0613321A

PATIENT
  Age: 73 Year
  Sex: Male

DRUGS (11)
  1. AVANDIA [Suspect]
     Dosage: 4MG PER DAY
     Route: 048
  2. BYETTA [Suspect]
     Dosage: 5MCG PER DAY
     Route: 048
     Dates: start: 20050926
  3. VIT B1 [Concomitant]
  4. GLYBURIDE [Concomitant]
  5. ASPIRIN [Concomitant]
  6. VYTORIN [Concomitant]
  7. ALLOPURINOL [Concomitant]
  8. UNSPECIFIED MEDICATION [Concomitant]
  9. MONOPRIL [Concomitant]
  10. HYDROCHLOROTHIAZIDE [Concomitant]
  11. FOLIC ACID [Concomitant]

REACTIONS (2)
  - HYPOGLYCAEMIA [None]
  - VISION BLURRED [None]
